FAERS Safety Report 8233789-4 (Version None)
Quarter: 2012Q1

REPORT INFORMATION
  Report Type: 
  Country: None (occurrence: None)
  Receive Date: 20120326
  Receipt Date: 20120312
  Transmission Date: 20120608
  Serious: Yes (Hospitalization)
  Sender: FDA-Public Use
  Company Number: US-MYLANLABS-2012S1006006

PATIENT
  Age: 25 Year
  Sex: Female

DRUGS (6)
  1. SODIUM OXYBATE [Suspect]
     Indication: NARCOLEPSY
     Dosage: INCREASED TO 9 G/DAY OVER 1 MONTH
     Route: 065
  2. BUSPIRONE HCL [Concomitant]
     Indication: ANXIETY
     Route: 065
  3. OXYCODONE HCL [Suspect]
     Dosage: 5-10MG EVERY 4H AS NEEDED
     Route: 065
  4. DIAZEPAM [Suspect]
     Indication: MUSCLE SPASMS
     Dosage: 2MG TID AS NEEDED
     Route: 065
  5. OXYCODONE HCL [Suspect]
     Indication: PAIN
     Route: 065
  6. LORAZEPAM [Suspect]
     Indication: MENTAL STATUS CHANGES
     Route: 048

REACTIONS (3)
  - MENTAL STATUS CHANGES [None]
  - TACHYCARDIA [None]
  - PSYCHOTIC DISORDER [None]
